FAERS Safety Report 7762218-X (Version None)
Quarter: 2011Q3

REPORT INFORMATION
  Report Type: 
  Country: None (occurrence: None)
  Receive Date: 20110920
  Receipt Date: 20110915
  Transmission Date: 20111222
  Serious: Yes (Death)
  Sender: FDA-Public Use
  Company Number: US-PFIZER INC-2011218872

PATIENT
  Sex: Male

DRUGS (6)
  1. RAPAMUNE [Suspect]
     Indication: HEART TRANSPLANT
     Dosage: 1 MG, DAILY
     Route: 048
     Dates: start: 20110908
  2. NEXIUM [Concomitant]
     Dosage: 20 MG, DAILY
     Route: 048
  3. PROGRAF [Concomitant]
     Dosage: 0.5 MG, 2X/DAY
     Route: 048
  4. PLAVIX [Concomitant]
     Dosage: 75 MG, DAILY
     Route: 048
  5. PRAVASTATIN [Concomitant]
     Dosage: 40 MG, DAILY
     Route: 048
  6. MYCOPHENOLATE MOFETIL (CELLCEPT) [Concomitant]
     Dosage: 1500 MG, 2X/DAY
     Route: 048

REACTIONS (1)
  - DEATH [None]
